FAERS Safety Report 8126322-9 (Version None)
Quarter: 2012Q1

REPORT INFORMATION
  Report Type: 
  Country: None (occurrence: None)
  Receive Date: 20120209
  Receipt Date: 20120130
  Transmission Date: 20120608
  Serious: Yes (Other)
  Sender: FDA-Public Use
  Company Number: US-ELI_LILLY_AND_COMPANY-US201111003565

PATIENT
  Sex: Female

DRUGS (24)
  1. FORTEO [Suspect]
     Dosage: 20 UG, QD
  2. XYLOCAINE [Concomitant]
     Dosage: UNK, EVERY 6 HRS
  3. CEPHRADINE [Concomitant]
     Dosage: UNK, EVERY 6 HRS
  4. VITAMIN B-12 [Concomitant]
     Dosage: UNK, 2/M
  5. VALIUM [Concomitant]
     Dosage: UNK, EVERY 6 HRS
  6. LIDOCAINE [Concomitant]
     Dosage: UNK, BID
  7. THEOPHYLLINE [Concomitant]
  8. PROAIR HFA [Concomitant]
     Dosage: UNK, PRN
  9. FIBER [Concomitant]
     Dosage: UNK, QD
  10. ZANTAC [Concomitant]
     Dosage: UNK, BID
  11. ISOSORB                            /00586302/ [Concomitant]
     Indication: CARDIAC DISORDER
  12. FORTEO [Suspect]
     Indication: OSTEOPOROSIS
     Dosage: 20 UG, QD
     Dates: start: 20110928
  13. PROMETHAZINE [Concomitant]
     Dosage: UNK, EVERY 6 HRS
  14. OXYGEN [Concomitant]
     Dosage: UNK
     Dates: start: 20080101
  15. ATROVENT [Concomitant]
  16. LORTAB [Concomitant]
     Dosage: UNK, EVERY 4 HRS
  17. FORTEO [Suspect]
     Dosage: 20 UG, QD
  18. METOCLOPRAMIDE [Concomitant]
     Indication: CARDIAC DISORDER
     Dosage: UNK, BID
  19. PAXIL [Concomitant]
     Dosage: UNK, QD
  20. FLOVENT [Concomitant]
     Dosage: UNK, BID
  21. ASCORBIC ACID [Concomitant]
  22. ASPIRIN [Concomitant]
     Dosage: UNK, QD
  23. VITAMIN D [Concomitant]
  24. IRON [Concomitant]

REACTIONS (15)
  - HYPOTONIA [None]
  - CHRONIC OBSTRUCTIVE PULMONARY DISEASE [None]
  - OEDEMA PERIPHERAL [None]
  - DYSPNOEA EXERTIONAL [None]
  - DYSPNOEA [None]
  - TRAUMATIC HAEMATOMA [None]
  - CONTUSION [None]
  - UNDERWEIGHT [None]
  - HYPERHIDROSIS [None]
  - FEELING ABNORMAL [None]
  - CATHETERISATION CARDIAC NORMAL [None]
  - JOINT DISLOCATION [None]
  - FALL [None]
  - FATIGUE [None]
  - VASCULAR INJURY [None]
